FAERS Safety Report 8175767 (Version 2)
Quarter: 2013Q2

REPORT INFORMATION
  Report Type: Report from Study
  Country: MX (occurrence: MX)
  Receive Date: 20111011
  Receipt Date: 20130617
  Transmission Date: 20140414
  Serious: Yes (Death, Hospitalization, Other)
  Sender: FDA-Public Use
  Company Number: PHHY2011MX88847

PATIENT
  Age: 84 Year
  Sex: Female

DRUGS (12)
  1. ACLASTA [Suspect]
     Indication: OSTEOPOROSIS
     Dosage: 5 MG/100 ML ONCE A YEAR
     Route: 042
     Dates: start: 20100806
  2. ACLASTA [Suspect]
     Dosage: 5 MG/100 ML, ONCE A YEAR
     Route: 042
     Dates: start: 201108
  3. LOSARTAN [Concomitant]
     Indication: HYPERTENSION
     Dosage: ONCE A DAY
     Dates: start: 20110602
  4. AMIODARONE [Concomitant]
     Indication: CARDIAC DISORDER
     Dosage: ONCE A DAY
     Dates: start: 20110602
  5. DIGOXIN [Concomitant]
     Indication: CARDIAC DISORDER
     Dosage: ONCE A DAY
  6. CLOPIDOGREL [Concomitant]
     Dosage: MIDDLE TABLET ONCE A DAY
     Dates: start: 20110602
  7. ACETYLSALICYLIC ACID [Concomitant]
     Dosage: MIDDLE TABLET ONCE A DAY
     Dates: start: 20110602
  8. ALPRAZOLAM [Concomitant]
     Dosage: MIDDLE TABLET ONCE A DAY
     Dates: start: 20110602
  9. SENNOSIDE [Concomitant]
     Indication: CONSTIPATION
     Dosage: 2 TABLETS BY DAY.
     Dates: start: 1996
  10. PANTOPRAZOLE [Concomitant]
     Indication: GASTRITIS
     Dosage: ONCE A DAY
     Dates: start: 201109
  11. GASGEL [Concomitant]
     Indication: GASTRITIS
     Dosage: ONE BY DAY
  12. GABAPENTINE [Concomitant]
     Indication: NEURALGIA
     Dosage: ONCE BY DAY
     Dates: start: 201109

REACTIONS (2)
  - Acute pulmonary oedema [Fatal]
  - Bradycardia [Recovered/Resolved]
